FAERS Safety Report 5161560-9 (Version None)
Quarter: 2006Q4

REPORT INFORMATION
  Report Type: 
  Country: None (occurrence: None)
  Receive Date: 20061130
  Receipt Date: 20060911
  Transmission Date: 20070319
  Serious: No
  Sender: FDA-Public Use
  Company Number: US-GLAXOSMITHKLINE-A0619778A

PATIENT
  Sex: Female

DRUGS (3)
  1. WELLBUTRIN XL [Suspect]
     Indication: DEPRESSION
     Dosage: 150MG PER DAY
     Route: 048
  2. ABILIFY [Concomitant]
  3. LEXAPRO [Concomitant]

REACTIONS (3)
  - DISTURBANCE IN ATTENTION [None]
  - NAUSEA [None]
  - PARAESTHESIA [None]
